FAERS Safety Report 6908976-5 (Version None)
Quarter: 2010Q3

REPORT INFORMATION
  Report Type: 
  Country: None (occurrence: None)
  Receive Date: 20100805
  Receipt Date: 20100720
  Transmission Date: 20110219
  Serious: Yes (Other)
  Sender: FDA-Public Use
  Company Number: US-BAYER-201023619NA

PATIENT
  Age: 40 Year
  Sex: Female
  Weight: 83 kg

DRUGS (7)
  1. YASMIN [Suspect]
     Indication: ORAL CONTRACEPTION
     Route: 048
     Dates: start: 20030301, end: 20070601
  2. YAZ [Suspect]
     Indication: ORAL CONTRACEPTION
     Route: 048
     Dates: start: 20070601, end: 20091001
  3. PROTONIX [Concomitant]
     Indication: GASTROOESOPHAGEAL REFLUX DISEASE
     Dates: start: 20040101
  4. PRILOSEC [Concomitant]
     Indication: GASTROOESOPHAGEAL REFLUX DISEASE
     Dates: start: 20040101
  5. ROBINUL [Concomitant]
     Indication: VERTIGO
     Dates: start: 20060101
  6. LEXAPRO [Concomitant]
     Indication: ANXIETY
  7. ATIVAN [Concomitant]
     Route: 042

REACTIONS (9)
  - ANXIETY [None]
  - CHOLECYSTITIS CHRONIC [None]
  - CHOLELITHIASIS [None]
  - DIZZINESS [None]
  - ERUCTATION [None]
  - GASTRIC DISORDER [None]
  - LYMPHADENOPATHY [None]
  - NAUSEA [None]
  - VOMITING [None]
